FAERS Safety Report 12716164 (Version 1)
Quarter: 2016Q3

REPORT INFORMATION
  Report Type: Report from Study
  Country: BR (occurrence: BR)
  Receive Date: 20160906
  Receipt Date: 20160906
  Transmission Date: 20161109
  Serious: Yes (Hospitalization)
  Sender: FDA-Public Use
  Company Number: PHHY2016BR120222

PATIENT
  Sex: Male
  Weight: 54 kg

DRUGS (1)
  1. ONBREZ BREEZHALER [Suspect]
     Active Substance: INDACATEROL
     Indication: CHRONIC OBSTRUCTIVE PULMONARY DISEASE
     Dosage: 150 UG (1 CAPSULE), QD
     Route: 055
     Dates: start: 20160326

REACTIONS (6)
  - Abasia [Unknown]
  - Speech disorder [Unknown]
  - Malaise [Unknown]
  - Decubitus ulcer [Recovering/Resolving]
  - Fatigue [Unknown]
  - Lung disorder [Recovering/Resolving]
